FAERS Safety Report 20833771 (Version 2)
Quarter: 2022Q2

REPORT INFORMATION
  Report Type: Spontaneous
  Country: AT (occurrence: AT)
  Receive Date: 20220516
  Receipt Date: 20220523
  Transmission Date: 20220720
  Serious: Yes (Other)
  Sender: FDA-Public Use
  Company Number: AT-SUN PHARMACEUTICAL INDUSTRIES LTD-2021RR-333502

PATIENT
  Age: 67 Year
  Sex: Male

DRUGS (8)
  1. GEMCITABINE [Suspect]
     Active Substance: GEMCITABINE
     Indication: Pancreatic carcinoma metastatic
     Dosage: UNK
     Route: 065
  2. FLUOROURACIL [Suspect]
     Active Substance: FLUOROURACIL
     Indication: Pancreatic carcinoma metastatic
     Dosage: 2400 MILLIGRAM/SQ. METER
     Route: 065
  3. FLUOROURACIL [Suspect]
     Active Substance: FLUOROURACIL
     Dosage: 400 MILLIGRAM/SQ. METER
     Route: 065
  4. IRINOTECAN [Suspect]
     Active Substance: IRINOTECAN
     Indication: Pancreatic carcinoma metastatic
     Dosage: 70 MILLIGRAM/SQ. METER
     Route: 065
  5. IRINOTECAN [Suspect]
     Active Substance: IRINOTECAN
     Dosage: 400 MILLIGRAM/SQ. METER
     Route: 065
  6. PACLITAXEL [Suspect]
     Active Substance: PACLITAXEL
     Indication: Pancreatic carcinoma
     Dosage: UNK
     Route: 065
  7. LEUCOVORIN CALCIUM [Suspect]
     Active Substance: LEUCOVORIN CALCIUM
     Indication: Pancreatic carcinoma metastatic
     Dosage: 400 MILLIGRAM/SQ. METER
     Route: 065
  8. PACLITAXEL [Suspect]
     Active Substance: PACLITAXEL
     Indication: Pancreatic carcinoma metastatic
     Dosage: UNK
     Route: 065

REACTIONS (12)
  - Disease progression [Unknown]
  - Abdominal pain [Unknown]
  - Pancreatic carcinoma [Unknown]
  - Metastases to peritoneum [Unknown]
  - Malignant neoplasm progression [Unknown]
  - Back pain [Unknown]
  - Neuropathy peripheral [Unknown]
  - Fatigue [Unknown]
  - Diarrhoea [Unknown]
  - Neutropenia [Unknown]
  - Therapeutic product effect incomplete [Unknown]
  - Product use in unapproved indication [Unknown]
